FAERS Safety Report 24000583 (Version 1)
Quarter: 2024Q2

REPORT INFORMATION
  Report Type: Spontaneous
  Country: US (occurrence: US)
  Receive Date: 20240621
  Receipt Date: 20240621
  Transmission Date: 20240716
  Serious: Yes (Other)
  Sender: FDA-Public Use
  Company Number: US-TRIGEN LABORATORIES-2024ALO00254

PATIENT
  Sex: Male

DRUGS (1)
  1. METHYLPHENIDATE [Suspect]
     Active Substance: METHYLPHENIDATE

REACTIONS (2)
  - Bone density decreased [Unknown]
  - Fracture delayed union [Unknown]
